FAERS Safety Report 5777398-5 (Version None)
Quarter: 2008Q2

REPORT INFORMATION
  Report Type: 
  Country: None (occurrence: None)
  Receive Date: 20080618
  Receipt Date: 20080613
  Transmission Date: 20081010
  Serious: Yes (Life-Threatening, Hospitalization)
  Sender: FDA-Public Use
  Company Number: BE-AVENTIS-200812008GDDC

PATIENT
  Age: 58 Year
  Sex: Female
  Weight: 60 kg

DRUGS (7)
  1. DOCETAXEL [Suspect]
     Indication: BREAST CANCER
     Route: 042
     Dates: start: 20080211, end: 20080211
  2. XELODA [Suspect]
     Indication: BREAST CANCER
     Dosage: DOSE: 825 MG/M2 2X/DAY FROM DAY 1-14
     Route: 048
     Dates: start: 20080211, end: 20080224
  3. ZESTRIL [Concomitant]
     Indication: HYPERTENSION
     Route: 048
  4. UNKNOWN DRUG [Concomitant]
     Indication: EPILEPSY
     Route: 048
  5. BROMAZEPAM [Concomitant]
     Indication: INSOMNIA
     Route: 048
  6. UNKNOWN DRUG [Concomitant]
     Route: 048
  7. KRESTIN [Concomitant]
     Dosage: DOSE: UNK

REACTIONS (4)
  - ASTHENIA [None]
  - FEBRILE NEUTROPENIA [None]
  - ORAL FUNGAL INFECTION [None]
  - WOUND DEHISCENCE [None]
